FAERS Safety Report 25192394 (Version 1)
Quarter: 2025Q2

REPORT INFORMATION
  Report Type: Other
  Country: GB (occurrence: GB)
  Receive Date: 20250414
  Receipt Date: 20250414
  Transmission Date: 20250717
  Serious: Yes (Other)
  Sender: LYNE LABORATORIES
  Company Number: GB-Lyne Laboratories Inc.-2174824

PATIENT

DRUGS (1)
  1. DEXAMETHASONE [Suspect]
     Active Substance: DEXAMETHASONE
     Indication: Meningioma

REACTIONS (6)
  - Adrenal insufficiency [Unknown]
  - Product use in unapproved indication [Unknown]
  - Impaired quality of life [Unknown]
  - Weight increased [Unknown]
  - Insomnia [Unknown]
  - Glucose tolerance impaired [Unknown]
